FAERS Safety Report 13937457 (Version 2)
Quarter: 2017Q3

REPORT INFORMATION
  Report Type: Report from Study
  Country: NL (occurrence: NL)
  Receive Date: 20170905
  Receipt Date: 20170906
  Transmission Date: 20171127
  Serious: Yes (Hospitalization)
  Sender: FDA-Public Use
  Company Number: NL-MYLANLABS-2017M1054613

PATIENT
  Sex: Female

DRUGS (1)
  1. AZATHIOPRINE. [Suspect]
     Active Substance: AZATHIOPRINE
     Indication: PRODUCT USED FOR UNKNOWN INDICATION
     Dosage: 150 MG/DAY
     Route: 065

REACTIONS (5)
  - Ascites [Unknown]
  - Oesophageal varices haemorrhage [Unknown]
  - Splenomegaly [Unknown]
  - Nodular regenerative hyperplasia [Unknown]
  - Hepatic encephalopathy [Unknown]
